FAERS Safety Report 21175962 (Version 1)
Quarter: 2022Q3

REPORT INFORMATION
  Report Type: Other
  Country: GB (occurrence: GB)
  Receive Date: 20220805
  Receipt Date: 20220805
  Transmission Date: 20221027
  Serious: Yes (Other)
  Sender: FDA-Public Use
  Company Number: GB-MHRA-MED-202207290719312480-RJYTM

PATIENT

DRUGS (1)
  1. ALLOPURINOL [Suspect]
     Active Substance: ALLOPURINOL
     Indication: Product used for unknown indication
     Dosage: 300 MILLIGRAM
     Route: 065
     Dates: end: 20220728

REACTIONS (6)
  - Lip swelling [Recovering/Resolving]
  - Swollen tongue [Unknown]
  - Gingival erythema [Unknown]
  - Oral mucosal erythema [Unknown]
  - Gingival pain [Unknown]
  - Oral pain [Unknown]
